FAERS Safety Report 22624824 (Version 1)
Quarter: 2023Q2

REPORT INFORMATION
  Report Type: Spontaneous
  Country: US (occurrence: None)
  Receive Date: 20230620
  Receipt Date: 20230620
  Transmission Date: 20230721
  Serious: Yes (Death)
  Sender: FDA-Public Use
  Company Number: None

PATIENT
  Age: 72 Year
  Sex: Male

DRUGS (10)
  1. CREON [Suspect]
     Active Substance: PANCRELIPASE AMYLASE\PANCRELIPASE LIPASE\PANCRELIPASE PROTEASE
     Dosage: FREQUENCY : 3 TIMES A DAY;?
     Route: 048
     Dates: start: 20210715, end: 20230615
  2. CAPECITABINE [Suspect]
     Active Substance: CAPECITABINE
     Dosage: FREQUENCY : TWICE A DAY;?
     Route: 048
     Dates: start: 20230110
  3. ELIQUIS [Concomitant]
     Active Substance: APIXABAN
     Dates: start: 20220406
  4. LEVOTHYROXINE [Concomitant]
     Active Substance: LEVOTHYROXINE
     Dates: start: 20220119
  5. HUMALOG [Concomitant]
     Active Substance: INSULIN LISPRO
     Dates: start: 20230320
  6. GLIPIZIDE [Concomitant]
     Active Substance: GLIPIZIDE
     Dates: start: 20221227
  7. FUROSEMIDE [Concomitant]
     Active Substance: FUROSEMIDE
     Dates: start: 20220120
  8. LANTUS [Concomitant]
     Active Substance: INSULIN GLARGINE
     Dates: start: 20230110
  9. OXYCODONE [Concomitant]
     Active Substance: OXYCODONE
     Dates: start: 20230509
  10. ASPIRIN [Concomitant]
     Active Substance: ASPIRIN
     Dates: start: 20220125

REACTIONS (1)
  - Death [None]

NARRATIVE: CASE EVENT DATE: 20230615
